FAERS Safety Report 10626315 (Version 4)
Quarter: 2015Q1

REPORT INFORMATION
  Report Type: Spontaneous
  Country: FR (occurrence: FR)
  Receive Date: 20141204
  Receipt Date: 20150102
  Transmission Date: 20150720
  Serious: Yes (Other)
  Sender: FDA-Public Use
  Company Number: FR-DSJP-DSE-2014-130552

PATIENT

DRUGS (8)
  1. NOCTAMIDE [Suspect]
     Active Substance: LORMETAZEPAM
     Indication: POST-TRAUMATIC STRESS DISORDER
     Route: 048
     Dates: start: 2011, end: 201409
  2. VASTEN                             /00880402/ [Suspect]
     Active Substance: PRAVASTATIN SODIUM
     Indication: HYPERCHOLESTEROLAEMIA
     Dosage: UNK
     Route: 048
  3. CYMBALTA [Suspect]
     Active Substance: DULOXETINE HYDROCHLORIDE
     Indication: POST-TRAUMATIC STRESS DISORDER
     Route: 048
     Dates: start: 2011, end: 2012
  4. LYSANXIA [Suspect]
     Active Substance: PRAZEPAM
     Indication: POST-TRAUMATIC STRESS DISORDER
     Route: 048
     Dates: start: 201310, end: 201409
  5. ALTEIS [Suspect]
     Active Substance: OLMESARTAN MEDOXOMIL
     Indication: HYPERTENSION
     Route: 048
  6. ZOLOFT [Suspect]
     Active Substance: SERTRALINE HYDROCHLORIDE
     Indication: POST-TRAUMATIC STRESS DISORDER
     Route: 048
     Dates: start: 201310, end: 201409
  7. NORDAZ [Suspect]
     Active Substance: NORDAZEPAM
     Indication: POST-TRAUMATIC STRESS DISORDER
     Route: 048
     Dates: start: 2011, end: 2013
  8. STABLON [Suspect]
     Active Substance: TIANEPTINE
     Indication: POST-TRAUMATIC STRESS DISORDER
     Route: 048
     Dates: start: 2012, end: 201310

REACTIONS (2)
  - Porphyria non-acute [Not Recovered/Not Resolved]
  - Skin fragility [Not Recovered/Not Resolved]

NARRATIVE: CASE EVENT DATE: 2012
